FAERS Safety Report 6471044-3 (Version None)
Quarter: 2009Q4

REPORT INFORMATION
  Report Type: 
  Country: None (occurrence: None)
  Receive Date: 20091203
  Receipt Date: 20091125
  Transmission Date: 20100525
  Serious: Yes (Death)
  Sender: FDA-Public Use
  Company Number: US-PFIZER INC-2009272940

PATIENT
  Sex: Female
  Weight: 60.317 kg

DRUGS (2)
  1. SUTENT [Suspect]
     Indication: PANCREATIC CARCINOMA
     Dosage: 50 MG, 1X/DAY X 4 WEEKS
     Dates: start: 20090826
  2. COUMADIN [Concomitant]
     Indication: DEEP VEIN THROMBOSIS

REACTIONS (1)
  - HAEMORRHAGIC STROKE [None]
